FAERS Safety Report 11138117 (Version 3)
Quarter: 2015Q2

REPORT INFORMATION
  Report Type: Report from Study
  Country: CA (occurrence: CA)
  Receive Date: 20150526
  Receipt Date: 20150603
  Transmission Date: 20150821
  Serious: Yes (Other)
  Sender: FDA-Public Use
  Company Number: PHHY2014CA139472

PATIENT
  Age: 81 Year
  Sex: Male

DRUGS (3)
  1. SANDOSTATIN LAR DEPOT [Suspect]
     Active Substance: OCTREOTIDE ACETATE
     Dosage: 30 MG, QMO
     Route: 030
  2. SANDOSTATIN LAR DEPOT [Suspect]
     Active Substance: OCTREOTIDE ACETATE
     Indication: IRON DEFICIENCY ANAEMIA
     Dosage: 20 MG, QMO
     Route: 030
     Dates: start: 20141022
  3. SANDOSTATIN [Suspect]
     Active Substance: OCTREOTIDE ACETATE
     Indication: IRON DEFICIENCY ANAEMIA
     Dosage: BID
     Route: 058
     Dates: start: 2014, end: 20141015

REACTIONS (10)
  - Faeces discoloured [Unknown]
  - Off label use [Unknown]
  - Heart rate irregular [Unknown]
  - Dyspnoea [Unknown]
  - Pulmonary oedema [Unknown]
  - Blood glucose increased [Recovering/Resolving]
  - Weight decreased [Not Recovered/Not Resolved]
  - Anxiety [Unknown]
  - Blood pressure systolic increased [Recovering/Resolving]
  - Haemoglobin decreased [Not Recovered/Not Resolved]

NARRATIVE: CASE EVENT DATE: 2014
